FAERS Safety Report 11740843 (Version 2)
Quarter: 2015Q4

REPORT INFORMATION
  Report Type: Spontaneous
  Country: JP (occurrence: JP)
  Receive Date: 20151114
  Receipt Date: 20151201
  Transmission Date: 20160304
  Serious: Yes (Other)
  Sender: FDA-Public Use
  Company Number: JP-EMD SERONO-8052055

PATIENT
  Age: 32 Year
  Sex: Female

DRUGS (2)
  1. HMG                                /01277601/ [Concomitant]
     Indication: OVULATION INDUCTION
     Route: 065
  2. GONAL-F [Suspect]
     Active Substance: FOLLITROPIN
     Indication: OVULATION INDUCTION
     Route: 058

REACTIONS (1)
  - Ectopic pregnancy [Unknown]
